FAERS Safety Report 5312930-7 (Version None)
Quarter: 2007Q2

REPORT INFORMATION
  Report Type: 
  Country: None (occurrence: None)
  Receive Date: 20070430
  Receipt Date: 20070418
  Transmission Date: 20071010
  Serious: Yes (Hospitalization, Disabling, Other)
  Sender: FDA-Public Use
  Company Number: US-PFIZER INC-2006124711

PATIENT
  Sex: Female
  Weight: 66.2 kg

DRUGS (2)
  1. BEXTRA [Suspect]
     Indication: CARPAL TUNNEL SYNDROME
     Route: 048
  2. BEXTRA [Suspect]
     Indication: ARTHRITIS

REACTIONS (14)
  - ANXIETY [None]
  - ARTERIOSCLEROSIS [None]
  - CEREBROVASCULAR ACCIDENT [None]
  - CLOSTRIDIUM DIFFICILE COLITIS [None]
  - DEEP VEIN THROMBOSIS [None]
  - DEPRESSION [None]
  - INAPPROPRIATE ANTIDIURETIC HORMONE SECRETION [None]
  - INSOMNIA [None]
  - MALNUTRITION [None]
  - MYOCARDIAL INFARCTION [None]
  - RESPIRATORY FAILURE [None]
  - SCAR [None]
  - SEPSIS [None]
  - VENTRICULAR TACHYCARDIA [None]
